FAERS Safety Report 9562526 (Version 2)
Quarter: 2013Q3

REPORT INFORMATION
  Report Type: Spontaneous
  Country: JP (occurrence: JP)
  Receive Date: 20130927
  Receipt Date: 20130927
  Transmission Date: 20140515
  Serious: Yes (Hospitalization)
  Sender: FDA-Public Use
  Company Number: JP-SANOFI-AVENTIS-2013SA041440

PATIENT
  Age: 67 Year
  Sex: Female
  Weight: 37.9 kg

DRUGS (5)
  1. RIFADIN [Suspect]
     Indication: ATYPICAL MYCOBACTERIAL INFECTION
     Route: 048
     Dates: start: 20110526, end: 20110607
  2. ETHAMBUTOL [Suspect]
     Indication: ATYPICAL MYCOBACTERIAL INFECTION
     Route: 048
     Dates: start: 20110526, end: 20110607
  3. LEVOFLOXACIN [Suspect]
     Indication: INFECTION
     Route: 048
     Dates: start: 20110512, end: 20110526
  4. KLARICID [Concomitant]
     Indication: ATYPICAL MYCOBACTERIAL INFECTION
     Dates: start: 2009
  5. BETAMIPRON/PANIPENEM [Concomitant]
     Dates: start: 20110606

REACTIONS (8)
  - Tubulointerstitial nephritis [Recovered/Resolved]
  - Renal impairment [Recovered/Resolved]
  - Proteinuria [Recovered/Resolved]
  - Antineutrophil cytoplasmic antibody positive [Recovered/Resolved]
  - Antineutrophil cytoplasmic antibody increased [Recovered/Resolved]
  - Respiratory tract infection [Recovered/Resolved]
  - Pyrexia [Recovered/Resolved]
  - Malaise [Recovered/Resolved]
